FAERS Safety Report 4866512-1 (Version None)
Quarter: 2005Q4

REPORT INFORMATION
  Report Type: 
  Country: None (occurrence: None)
  Receive Date: 20051227
  Receipt Date: 20051222
  Transmission Date: 20060501
  Serious: Yes (Life-Threatening)
  Sender: FDA-Public Use
  Company Number: 2005PK02533

PATIENT
  Age: 66 Year
  Sex: Female
  Weight: 58 kg

DRUGS (12)
  1. NEXIUM [Interacting]
     Route: 048
     Dates: end: 20051126
  2. METHOTREXATE [Suspect]
     Indication: PULMONARY FIBROSIS
     Route: 048
     Dates: start: 20050101, end: 20051126
  3. ASPIRIN [Interacting]
     Indication: AORTIC THROMBOSIS
     Route: 048
     Dates: start: 20051118
  4. EZETROL [Concomitant]
     Route: 048
  5. ZYLORIC [Concomitant]
     Route: 048
  6. TOREM [Concomitant]
     Route: 048
  7. ZESTRIL [Concomitant]
     Route: 048
  8. PLAVIX [Concomitant]
     Route: 048
     Dates: start: 20051118, end: 20051126
  9. BELOC [Concomitant]
     Route: 048
  10. PREDNISONE 50MG TAB [Concomitant]
     Route: 048
  11. NORVASC [Concomitant]
     Route: 048
  12. CALCIMAGON [Concomitant]

REACTIONS (5)
  - AORTIC THROMBOSIS [None]
  - DRUG INTERACTION [None]
  - DRUG TOXICITY [None]
  - EPISTAXIS [None]
  - PANCYTOPENIA [None]
